FAERS Safety Report 17097134 (Version 1)
Quarter: 2019Q4

REPORT INFORMATION
  Report Type: Spontaneous
  Country: DE (occurrence: DE)
  Receive Date: 20191202
  Receipt Date: 20191202
  Transmission Date: 20200122
  Serious: Yes (Life-Threatening, Hospitalization)
  Sender: FDA-Public Use
  Company Number: DE-ROCHE-2478375

PATIENT
  Age: 67 Year
  Sex: Female

DRUGS (1)
  1. KADCYLA [Suspect]
     Active Substance: ADO-TRASTUZUMAB EMTANSINE
     Indication: HER-2 POSITIVE BREAST CANCER
     Route: 065
     Dates: start: 20190917

REACTIONS (4)
  - Pulmonary oedema [Recovering/Resolving]
  - Resuscitation [Recovering/Resolving]
  - Hypoxia [Recovering/Resolving]
  - Cardiomyopathy [Recovering/Resolving]

NARRATIVE: CASE EVENT DATE: 20190920
